FAERS Safety Report 9733720 (Version 1)
Quarter: 2013Q4

REPORT INFORMATION
  Report Type: Spontaneous
  Country: US (occurrence: US)
  Receive Date: 20131205
  Receipt Date: 20131205
  Transmission Date: 20140711
  Serious: Yes (Other)
  Sender: FDA-Public Use
  Company Number: US-RB-061107-13

PATIENT
  Age: 25 Year
  Sex: Female

DRUGS (4)
  1. SUBOXONE FILM [Suspect]
     Indication: DRUG DEPENDENCE
     Dosage: SUBOXONE FILM
     Route: 060
     Dates: end: 201208
  2. BUPRENORPHINE GENERIC [Suspect]
     Indication: DRUG DEPENDENCE
     Route: 060
     Dates: start: 201208, end: 201304
  3. NICOTINE [Concomitant]
     Indication: NICOTINE DEPENDENCE
     Dosage: ONE CIGARETTE THREE TIMES A DAY/3 CIGARETTES PER DAY
     Route: 055
  4. PRENATAL VITAMINS [Concomitant]
     Indication: PRENATAL CARE
     Dosage: ONE DAILY
     Route: 048
     Dates: end: 201304

REACTIONS (4)
  - Maternal exposure during pregnancy [Recovered/Resolved]
  - Vomiting in pregnancy [Recovered/Resolved]
  - Pneumonia [Recovered/Resolved]
  - Cough [Recovered/Resolved]
